FAERS Safety Report 9644388 (Version 1)
Quarter: 2013Q4

REPORT INFORMATION
  Report Type: Spontaneous
  Country: US (occurrence: US)
  Receive Date: 20131025
  Receipt Date: 20131025
  Transmission Date: 20140711
  Serious: No
  Sender: FDA-Public Use
  Company Number: US-BIOGENIDEC-2013BI101250

PATIENT
  Sex: Female

DRUGS (2)
  1. TYSABRI [Suspect]
     Indication: MULTIPLE SCLEROSIS
     Route: 042
     Dates: start: 20070531
  2. BENADRYL [Concomitant]
     Indication: PREMEDICATION

REACTIONS (7)
  - Fall [Recovered/Resolved]
  - Balance disorder [Not Recovered/Not Resolved]
  - Pain in extremity [Recovered/Resolved]
  - Tibia fracture [Not Recovered/Not Resolved]
  - Ligament sprain [Recovered/Resolved]
  - Urticaria [Recovered/Resolved]
  - Fracture delayed union [Unknown]
